FAERS Safety Report 8583132-6 (Version None)
Quarter: 2012Q3

REPORT INFORMATION
  Report Type: 
  Country: None (occurrence: None)
  Receive Date: 20120809
  Receipt Date: 20120801
  Transmission Date: 20120928
  Serious: Yes (Hospitalization, Other)
  Sender: FDA-Public Use
  Company Number: US-VERTEX PHARMACEUTICALS INC.-AE-2012-011526

PATIENT

DRUGS (1)
  1. INCIVEK [Suspect]
     Indication: HEPATITIS C

REACTIONS (17)
  - NAUSEA [None]
  - INSOMNIA [None]
  - UNEVALUABLE EVENT [None]
  - PRURITUS [None]
  - DYSGEUSIA [None]
  - STEVENS-JOHNSON SYNDROME [None]
  - HEADACHE [None]
  - VOMITING [None]
  - SKIN REACTION [None]
  - INFLUENZA LIKE ILLNESS [None]
  - DIARRHOEA [None]
  - FATIGUE [None]
  - RASH [None]
  - MOOD ALTERED [None]
  - ANORECTAL DISORDER [None]
  - ANAEMIA [None]
  - BLOOD DISORDER [None]
